FAERS Safety Report 22004088 (Version 1)
Quarter: 2023Q1

REPORT INFORMATION
  Report Type: Spontaneous
  Country: US (occurrence: US)
  Receive Date: 20230217
  Receipt Date: 20230217
  Transmission Date: 20230418
  Serious: No
  Sender: FDA-Public Use
  Company Number: US-SA-SAC20230216000057

PATIENT
  Sex: Female
  Weight: 123.8 kg

DRUGS (7)
  1. DUPIXENT [Suspect]
     Active Substance: DUPILUMAB
     Indication: Asthma
     Dosage: 300 MG, QOW
     Route: 058
  2. CLOCORTOLONE PIVALATE [Concomitant]
     Active Substance: CLOCORTOLONE PIVALATE
     Dosage: UNK
  3. ZOLPIDEM TARTRATE [Concomitant]
     Active Substance: ZOLPIDEM TARTRATE
  4. AMITRIPTYLINE [Concomitant]
     Active Substance: AMITRIPTYLINE
  5. AMLODIPINE\OLMESARTAN [Concomitant]
     Active Substance: AMLODIPINE\OLMESARTAN
  6. OLMESARTAN [Concomitant]
     Active Substance: OLMESARTAN
     Indication: Hypertension
  7. CLOBETASOL PROPIONATE [Concomitant]
     Active Substance: CLOBETASOL PROPIONATE

REACTIONS (1)
  - Pruritus [Unknown]
